FAERS Safety Report 13553435 (Version 3)
Quarter: 2025Q1

REPORT INFORMATION
  Report Type: Report from Study
  Country: FR (occurrence: FR)
  Receive Date: 20170517
  Receipt Date: 20250115
  Transmission Date: 20250409
  Serious: Yes (Other)
  Sender: RANBAXY
  Company Number: FR-SUN PHARMACEUTICAL INDUSTRIES LTD-2017RR-140565

PATIENT

DRUGS (6)
  1. MELPHALAN [Suspect]
     Active Substance: MELPHALAN
     Indication: Plasma cell myeloma
     Dosage: 0.25 MG/KG, DAILY
     Route: 048
  2. PREDNISONE [Suspect]
     Active Substance: PREDNISONE
     Indication: Plasma cell myeloma
     Route: 048
  3. KYPROLIS [Suspect]
     Active Substance: CARFILZOMIB
     Indication: Plasma cell myeloma
     Route: 042
  4. KYPROLIS [Suspect]
     Active Substance: CARFILZOMIB
     Route: 042
  5. KYPROLIS [Suspect]
     Active Substance: CARFILZOMIB
     Route: 042
  6. KYPROLIS [Suspect]
     Active Substance: CARFILZOMIB
     Route: 042

REACTIONS (2)
  - Vomiting [Unknown]
  - Cholestasis [Unknown]
